FAERS Safety Report 4283332-X (Version None)
Quarter: 2004Q1

REPORT INFORMATION
  Report Type: 
  Country: None (occurrence: None)
  Receive Date: 20040121
  Receipt Date: 20031219
  Transmission Date: 20041129
  Serious: Yes (Other)
  Sender: FDA-Public Use
  Company Number: HQWYE932630SEP03

PATIENT
  Age: 43 Year
  Sex: Male

DRUGS (7)
  1. REFACTO [Suspect]
     Indication: FACTOR VIII DEFICIENCY
     Dosage: SEE IMAGE
     Route: 042
     Dates: start: 20030613, end: 20030926
  2. REFACTO [Suspect]
     Indication: FACTOR VIII DEFICIENCY
     Dosage: SEE IMAGE
     Route: 042
     Dates: start: 20030926
  3. REFACTO [Suspect]
  4. TRANEXAMIC ACID (TRANEXAMIC ACID) [Concomitant]
  5. GLUCOSAMINE (GLUCOSAMINE) [Concomitant]
  6. VITAMIN C (ASCORBIC ACID) [Concomitant]
  7. ZINC (ZINC) [Concomitant]

REACTIONS (5)
  - ANTI FACTOR VIII ANTIBODY POSITIVE [None]
  - DRUG INEFFECTIVE [None]
  - HAEMARTHROSIS [None]
  - JOINT INJURY [None]
  - LABORATORY TEST INTERFERENCE [None]
